FAERS Safety Report 8432543-8 (Version None)
Quarter: 2012Q2

REPORT INFORMATION
  Report Type: 
  Country: None (occurrence: None)
  Receive Date: 20120606
  Receipt Date: 20120525
  Transmission Date: 20120825
  Serious: Yes (Other)
  Sender: FDA-Public Use
  Company Number: AUR-APL-2012-02251

PATIENT
  Age: 69 Year
  Sex: Male

DRUGS (4)
  1. AMOXICILLIN [Suspect]
     Indication: HELICOBACTER GASTRITIS
     Dates: start: 20120501
  2. CLARITHROMYCIN [Suspect]
     Indication: HELICOBACTER GASTRITIS
     Dates: start: 20120501
  3. NEXAVAR [Suspect]
     Indication: HELICOBACTER GASTRITIS
     Dates: start: 20120501
  4. OMEPRAZOLE [Concomitant]

REACTIONS (2)
  - ANAPHYLACTIC REACTION [None]
  - DRUG HYPERSENSITIVITY [None]
